FAERS Safety Report 6411738-9 (Version None)
Quarter: 2009Q4

REPORT INFORMATION
  Report Type: 
  Country: None (occurrence: None)
  Receive Date: 20091020
  Receipt Date: 20091007
  Transmission Date: 20100525
  Serious: Yes (Hospitalization)
  Sender: FDA-Public Use
  Company Number: 2009AC000183

PATIENT
  Age: 74 Year
  Sex: Male

DRUGS (34)
  1. DIGOXIN [Suspect]
     Dosage: 0.125 MG
     Dates: start: 20010101, end: 20080217
  2. SPIRIVA [Concomitant]
  3. CAPTOPRIL [Concomitant]
  4. FLOMAX [Concomitant]
  5. NASONEX [Concomitant]
  6. ADVAIR DISKUS 100/50 [Concomitant]
  7. PLAVIX [Concomitant]
  8. KEFLEX [Concomitant]
  9. PRILOSEC [Concomitant]
  10. ASPIRIN [Concomitant]
  11. AZITHROMYCIN [Concomitant]
  12. SINGULAIR [Concomitant]
  13. PULMICORT [Concomitant]
  14. PREDNISONE [Concomitant]
  15. DUONEB [Concomitant]
  16. OMEPRAZOLE [Concomitant]
  17. SOLU-MEDROL [Concomitant]
  18. ALBUTEROL [Concomitant]
  19. MUCINEX [Concomitant]
  20. QUAIFENESIN [Concomitant]
  21. ZITHROMAX [Concomitant]
  22. SOTALOL [Concomitant]
  23. METOPROLOL [Concomitant]
  24. DIAZEPAM [Concomitant]
  25. LISINOPRIL [Concomitant]
  26. FUROSEMIDE [Concomitant]
  27. COUMADIN [Concomitant]
  28. TYLENOL [Concomitant]
  29. LEVAQUIN [Concomitant]
  30. ROCEPHIN [Concomitant]
  31. COMBIVENT [Concomitant]
  32. OXYGEN [Concomitant]
  33. CIPROFLOXACIN [Concomitant]
  34. MEDROL [Concomitant]

REACTIONS (17)
  - BENIGN PROSTATIC HYPERPLASIA [None]
  - BRONCHITIS [None]
  - CHILLS [None]
  - CHRONIC OBSTRUCTIVE PULMONARY DISEASE [None]
  - ECONOMIC PROBLEM [None]
  - ILL-DEFINED DISORDER [None]
  - INCREASED UPPER AIRWAY SECRETION [None]
  - INJURY [None]
  - LIVER FUNCTION TEST ABNORMAL [None]
  - NEPHROLITHIASIS [None]
  - OBSTRUCTIVE AIRWAYS DISORDER [None]
  - PNEUMONIA KLEBSIELLA [None]
  - PYREXIA [None]
  - SEPSIS [None]
  - SURGERY [None]
  - UPPER RESPIRATORY TRACT INFECTION [None]
  - URINARY TRACT INFECTION [None]
